FAERS Safety Report 10374988 (Version 2)
Quarter: 2014Q3

REPORT INFORMATION
  Report Type: Spontaneous
  Country: PT (occurrence: PT)
  Receive Date: 20140811
  Receipt Date: 20140811
  Transmission Date: 20150326
  Serious: Yes (Other)
  Sender: FDA-Public Use
  Company Number: PT-SA-2014SA084155

PATIENT
  Age: 55 Year
  Sex: Male
  Weight: 74 kg

DRUGS (5)
  1. DOXORUBICIN [Concomitant]
     Active Substance: DOXORUBICIN
     Indication: PROLYMPHOCYTIC LEUKAEMIA
     Dates: start: 200706
  2. CYCLOPHOSPHAMIDE. [Concomitant]
     Active Substance: CYCLOPHOSPHAMIDE
     Indication: PROLYMPHOCYTIC LEUKAEMIA
     Dates: start: 200706
  3. VINCRISTINE [Concomitant]
     Active Substance: VINCRISTINE
     Indication: PROLYMPHOCYTIC LEUKAEMIA
     Dates: start: 200706
  4. PREDNISOLONE. [Concomitant]
     Active Substance: PREDNISOLONE
     Indication: PROLYMPHOCYTIC LEUKAEMIA
     Dates: start: 200706
  5. MABCAMPATH [Suspect]
     Active Substance: ALEMTUZUMAB
     Indication: PROLYMPHOCYTIC LEUKAEMIA
     Route: 065
     Dates: start: 200706

REACTIONS (2)
  - Leukaemia recurrent [Unknown]
  - Off label use [Unknown]

NARRATIVE: CASE EVENT DATE: 2014
